FAERS Safety Report 6195208-1 (Version None)
Quarter: 2009Q2

REPORT INFORMATION
  Report Type: 
  Country: None (occurrence: None)
  Receive Date: 20090519
  Receipt Date: 20090506
  Transmission Date: 20091009
  Serious: Yes (Hospitalization)
  Sender: FDA-Public Use
  Company Number: US-MERCK-0808USA04350

PATIENT
  Age: 54 Year
  Sex: Female
  Weight: 104 kg

DRUGS (1)
  1. FOSAMAX [Suspect]
     Indication: OSTEOPOROSIS
     Route: 048
     Dates: start: 20000901, end: 20001005

REACTIONS (3)
  - ABDOMINAL PAIN [None]
  - ADVERSE DRUG REACTION [None]
  - GASTROINTESTINAL DISORDER [None]
